FAERS Safety Report 4326423-7 (Version None)
Quarter: 2004Q1

REPORT INFORMATION
  Report Type: 
  Country: None (occurrence: None)
  Receive Date: 20040325
  Receipt Date: 20031201
  Transmission Date: 20041129
  Serious: Yes (Other)
  Sender: FDA-Public Use
  Company Number: 0300023EN0020P

PATIENT

DRUGS (1)
  1. ONCASPAR [Suspect]
     Indication: ACUTE LYMPHOCYTIC LEUKAEMIA
     Dosage: 2500 IU IM
     Route: 030

REACTIONS (3)
  - CHEST PAIN [None]
  - DYSPNOEA [None]
  - PRURITUS [None]
